FAERS Safety Report 8763885 (Version 1)
Quarter: 2012Q4

REPORT INFORMATION
  Report Type: 
  Country: GB (occurrence: GB)
  Receive Date: 20120831
  Receipt Date: 20120831
  Transmission Date: 20130627
  Serious: Yes (Other)
  Sender: FDA-Public Use
  Company Number: GB-RANBAXY-2012R1-59295

PATIENT
  Age: 53 Year
  Sex: Female
  Weight: 65 kg

DRUGS (4)
  1. METRONIDAZOLE [Suspect]
     Indication: DENTAL CARE
     Dosage: 200 mg, tid
     Route: 065
     Dates: start: 20120727
  2. SERTRALINE [Suspect]
     Indication: DEPRESSED MOOD
     Dosage: 50 mg, qd
     Route: 048
     Dates: start: 20120731, end: 20120801
  3. ELLESTE DUET [Concomitant]
     Indication: HORMONE REPLACEMENT THERAPY
     Dosage: 1 mg, qd
     Route: 048
     Dates: start: 20120731
  4. ZAPAIN [Concomitant]
     Indication: PAIN
     Dosage: 2, 4/1 days
     Route: 048
     Dates: start: 20120731

REACTIONS (3)
  - Diarrhoea [Recovered/Resolved]
  - Migraine [Recovered/Resolved]
  - Vision blurred [Recovered/Resolved]
